FAERS Safety Report 25731503 (Version 1)
Quarter: 2025Q3

REPORT INFORMATION
  Report Type: Report from Study
  Country: US (occurrence: US)
  Receive Date: 20250827
  Receipt Date: 20250827
  Transmission Date: 20251021
  Serious: Yes (Hospitalization)
  Sender: ACADIA PHARMACEUTICALS
  Company Number: US-ACADIA PHARMACEUTICALS INC.-ACA-2025-ACP-009300

PATIENT
  Sex: Female
  Weight: 16 kg

DRUGS (6)
  1. TROFINETIDE [Suspect]
     Active Substance: TROFINETIDE
     Indication: Rett syndrome
     Dosage: 30 MILLILITER, BID
     Route: 065
     Dates: start: 20230624
  2. GABAPENTIN [Concomitant]
     Active Substance: GABAPENTIN
     Indication: Hyperaesthesia
     Dosage: 50 MILLIGRAM, BID
     Route: 048
     Dates: start: 20230829, end: 20240918
  3. POLYETHYLENE GLYCOLS [Concomitant]
     Active Substance: POLYETHYLENE GLYCOLS
     Indication: Constipation
     Dosage: 8.5 GRAM, QD
     Route: 048
     Dates: start: 20230227, end: 20240914
  4. ERGOCALCIFEROL [Concomitant]
     Active Substance: ERGOCALCIFEROL
     Indication: Osteoporosis prophylaxis
     Route: 048
     Dates: start: 20230228, end: 20250731
  5. LEVETIRACETAM [Concomitant]
     Active Substance: LEVETIRACETAM
     Indication: Epilepsy
     Dosage: 290 MILLIGRAM, BID
     Route: 048
     Dates: start: 20231019
  6. FAMOTIDINE [Concomitant]
     Active Substance: FAMOTIDINE
     Indication: Gastrooesophageal reflux disease
     Dosage: 8 MILLIGRAM, QD
     Route: 048
     Dates: start: 20240228

REACTIONS (1)
  - Seizure [Recovered/Resolved]

NARRATIVE: CASE EVENT DATE: 20240907
